FAERS Safety Report 14912012 (Version 1)
Quarter: 2018Q2

REPORT INFORMATION
  Report Type: Spontaneous
  Country: NL (occurrence: NL)
  Receive Date: 20180518
  Receipt Date: 20180518
  Transmission Date: 20180711
  Serious: Yes (Hospitalization)
  Sender: FDA-Public Use
  Company Number: NL-009507513-1805NLD003559

PATIENT
  Age: 62 Year
  Sex: Male
  Weight: 93 kg

DRUGS (14)
  1. CUTIVATE [Concomitant]
     Active Substance: FLUTICASONE PROPIONATE
     Dosage: USE IF NECESSARY
  2. METOPROLOL SUCCINATE. [Concomitant]
     Active Substance: METOPROLOL SUCCINATE
     Dosage: 8.30 AM WITH BREAKFAST
  3. NIFEDIPINE. [Concomitant]
     Active Substance: NIFEDIPINE
     Dosage: 8.30 AM WITH BREAKFAST
  4. NISITA (EMSER SALT) [Concomitant]
     Dosage: USE IF NECESSARY
  5. UREUM ZALF FNA [Concomitant]
     Dosage: USE IF NECESSARY
  6. EZETROL [Suspect]
     Active Substance: EZETIMIBE
     Indication: HYPERCHOLESTEROLAEMIA
     Dosage: UNK
     Route: 048
     Dates: start: 20180323
  7. PANTOPRAZOLE [Concomitant]
     Active Substance: PANTOPRAZOLE
     Dosage: 7.30 AM (1 HOUR BEFORE BREAKFAST)
     Route: 048
  8. KETOCONAZOLE. [Concomitant]
     Active Substance: KETOCONAZOLE
     Dosage: AGAINST ECZEMA USE IF NEEDED
  9. NITROGLYCERIN. [Concomitant]
     Active Substance: NITROGLYCERIN
     Dosage: OCCASIONALLY USE IN CASE OF TIGHTNESS OF THE CHEST
  10. XYLOMETAZOLINE HYDROCHLORIDE [Concomitant]
     Active Substance: XYLOMETAZOLINE HYDROCHLORIDE
     Dosage: USE IF NECESSARY
  11. XARELTO [Concomitant]
     Active Substance: RIVAROXABAN
     Dosage: WITH DINNER
  12. VASELINE CETOMACROGOL CREAM FNA [Concomitant]
     Dosage: USE IF NECESSARY
  13. CANNABIS SATIVA OIL [Concomitant]
     Active Substance: CANNABIS SATIVA SUBSP. INDICA TOP
     Dosage: 45 DROPS
  14. ROSUVASTATIN. [Concomitant]
     Active Substance: ROSUVASTATIN
     Dosage: WITH DINNER

REACTIONS (1)
  - Cerebral infarction [Unknown]

NARRATIVE: CASE EVENT DATE: 20180330
